FAERS Safety Report 4503073-0 (Version None)
Quarter: 2004Q4

REPORT INFORMATION
  Report Type: 
  Country: None (occurrence: None)
  Receive Date: 20041116
  Receipt Date: 20041116
  Transmission Date: 20050328
  Serious: Yes (Hospitalization)
  Sender: FDA-Public Use
  Company Number: None

PATIENT
  Age: 42 Year
  Sex: Female
  Weight: 70.7611 kg

DRUGS (2)
  1. XELODA [Suspect]
     Indication: PERICARDIAL EFFUSION
  2. TAXOTERE [Suspect]

REACTIONS (3)
  - CHEST X-RAY ABNORMAL [None]
  - EFFUSION [None]
  - PERICARDIAL EFFUSION [None]
